FAERS Safety Report 15869198 (Version 2)
Quarter: 2019Q2

REPORT INFORMATION
  Report Type: Spontaneous
  Country: US (occurrence: US)
  Receive Date: 20190125
  Receipt Date: 20190618
  Transmission Date: 20190711
  Serious: Yes (Life-Threatening, Other)
  Sender: FDA-Public Use
  Company Number: US-SHIRE-US201902328

PATIENT
  Age: 37 Year
  Sex: Female

DRUGS (1)
  1. NATPARA (PARATHYROID HORMONE) [Suspect]
     Active Substance: PARATHYROID HORMONE
     Indication: HYPOPARATHYROIDISM
     Dosage: 50 MICROGRAM, 1X/DAY:QD
     Route: 058
     Dates: start: 20180430, end: 20190529

REACTIONS (2)
  - Breast cancer [Recovered/Resolved with Sequelae]
  - Brain neoplasm [Recovered/Resolved with Sequelae]

NARRATIVE: CASE EVENT DATE: 20180801
